FAERS Safety Report 13229581 (Version 3)
Quarter: 2017Q1

REPORT INFORMATION
  Report Type: Report from Study
  Country: None (occurrence: TW)
  Receive Date: 20170214
  Receipt Date: 20170328
  Transmission Date: 20170428
  Serious: Yes (Hospitalization)
  Sender: FDA-Public Use
  Company Number: TW-ABBVIE-17K-153-1868428-00

PATIENT
  Age: 41 Year
  Sex: Male
  Weight: 50 kg

DRUGS (1)
  1. HUMIRA [Suspect]
     Active Substance: ADALIMUMAB
     Indication: CROHN^S DISEASE
     Route: 058
     Dates: start: 20120530, end: 20170204

REACTIONS (21)
  - White blood cell count increased [Recovered/Resolved]
  - Haematocrit decreased [Recovering/Resolving]
  - Neutrophil count increased [Recovering/Resolving]
  - Lymphocyte count decreased [Recovering/Resolving]
  - Blood phosphorus decreased [Recovering/Resolving]
  - Blood bilirubin increased [Unknown]
  - Mean cell haemoglobin decreased [Recovering/Resolving]
  - Icterus index increased [Recovering/Resolving]
  - Bilirubin conjugated increased [Recovering/Resolving]
  - Mean cell volume decreased [Recovering/Resolving]
  - Ileus [Recovering/Resolving]
  - Abscess intestinal [Recovering/Resolving]
  - Blood calcium decreased [Recovering/Resolving]
  - Blood sodium decreased [Recovering/Resolving]
  - Blood albumin decreased [Recovering/Resolving]
  - Red cell distribution width increased [Recovering/Resolving]
  - Platelet count decreased [Recovering/Resolving]
  - Iron binding capacity total decreased [Recovering/Resolving]
  - Blood urea decreased [Unknown]
  - Transferrin decreased [Recovering/Resolving]
  - Haemoglobin decreased [Unknown]

NARRATIVE: CASE EVENT DATE: 20170130
